FAERS Safety Report 10479451 (Version 1)
Quarter: 2014Q3

REPORT INFORMATION
  Report Type: Spontaneous
  Country: JP (occurrence: JP)
  Receive Date: 20140926
  Receipt Date: 20140926
  Transmission Date: 20150326
  Serious: Yes (Death, Other)
  Sender: FDA-Public Use
  Company Number: JP-ASTRAZENECA-2014SE72150

PATIENT
  Age: 19 Year
  Sex: Male

DRUGS (6)
  1. DANTRIUM [Suspect]
     Active Substance: DANTROLENE SODIUM
     Indication: NEUROLEPTIC MALIGNANT SYNDROME
     Route: 041
  2. DANTRIUM [Suspect]
     Active Substance: DANTROLENE SODIUM
     Indication: NEUROLEPTIC MALIGNANT SYNDROME
     Route: 048
  3. CERCINE [Concomitant]
     Active Substance: DIAZEPAM
  4. SEROQUEL [Suspect]
     Active Substance: QUETIAPINE FUMARATE
     Route: 048
  5. ZYPREXA [Suspect]
     Active Substance: OLANZAPINE
     Route: 048
  6. TASMOLIN [Concomitant]
     Active Substance: BIPERIDEN

REACTIONS (4)
  - Neuroleptic malignant syndrome [Recovering/Resolving]
  - Intentional product misuse [Unknown]
  - Ventricular tachycardia [Fatal]
  - Extrasystoles [Fatal]
